FAERS Safety Report 24719800 (Version 2)
Quarter: 2024Q4

REPORT INFORMATION
  Report Type: Spontaneous
  Country: CN (occurrence: CN)
  Receive Date: 20241211
  Receipt Date: 20241216
  Transmission Date: 20250115
  Serious: Yes (Other)
  Sender: NOVARTIS
  Company Number: CN-002147023-NVSC2024CN233130

PATIENT
  Age: 64 Year
  Sex: Male
  Weight: 66 kg

DRUGS (5)
  1. TEGRETOL [Suspect]
     Active Substance: CARBAMAZEPINE
     Indication: Diabetes insipidus
     Dosage: 0.2 G, QD
     Route: 048
     Dates: start: 20241109, end: 20241119
  2. TEGRETOL [Suspect]
     Active Substance: CARBAMAZEPINE
     Indication: Cerebrovascular accident
  3. TEGRETOL [Suspect]
     Active Substance: CARBAMAZEPINE
     Indication: Hypertension
  4. TEGRETOL [Suspect]
     Active Substance: CARBAMAZEPINE
     Indication: Brain herniation
  5. TEGRETOL [Suspect]
     Active Substance: CARBAMAZEPINE
     Indication: Basal ganglia haemorrhage

REACTIONS (4)
  - Dermatitis exfoliative [Recovering/Resolving]
  - Erythema [Unknown]
  - Blister [Unknown]
  - Off label use [Unknown]

NARRATIVE: CASE EVENT DATE: 20241109
